FAERS Safety Report 6073358-8 (Version None)
Quarter: 2009Q1

REPORT INFORMATION
  Report Type: 
  Country: None (occurrence: None)
  Receive Date: 20090211
  Receipt Date: 20090204
  Transmission Date: 20090719
  Serious: Yes (Hospitalization, Other)
  Sender: FDA-Public Use
  Company Number: PHEH2005US04218

PATIENT
  Sex: Female
  Weight: 54.421 kg

DRUGS (14)
  1. AREDIA [Suspect]
     Indication: MULTIPLE MYELOMA
     Dosage: 30 MG, UNK
     Route: 042
     Dates: start: 20011101, end: 20030701
  2. AREDIA [Suspect]
     Dosage: 90 MG, QMO
     Route: 042
     Dates: start: 20011116, end: 20030401
  3. AREDIA [Suspect]
     Dosage: 90 MG, QMO
     Route: 042
     Dates: start: 20030601, end: 20040501
  4. PREMARIN [Concomitant]
  5. ZYRTEC [Concomitant]
  6. BENADRYL ^PFIZER WARNER-LAMBERT^ [Concomitant]
     Dates: start: 19910101
  7. RANITIDINE [Concomitant]
     Dosage: 150 MG, UNK
  8. ADVAIR DISKUS 100/50 [Concomitant]
  9. PERCOCET [Concomitant]
  10. REMERON [Concomitant]
  11. CHEMOTHERAPEUTICS NOS [Concomitant]
  12. GLEEVEC [Concomitant]
     Dosage: 500 MG, QD
     Route: 048
     Dates: start: 20040519
  13. SINGULAIR [Concomitant]
     Dosage: 10 MG, QD
  14. DIPROLENE [Concomitant]
     Dosage: UNK, PRN
     Route: 061

REACTIONS (38)
  - ASTROCYTOMA [None]
  - BIOPSY [None]
  - BONE DEBRIDEMENT [None]
  - BONE DISORDER [None]
  - BONE SCAN ABNORMAL [None]
  - CONDITION AGGRAVATED [None]
  - CRANIOTOMY [None]
  - DENTURE WEARER [None]
  - DIPLOPIA [None]
  - DISORDER OF ORBIT [None]
  - FISTULA [None]
  - FISTULA REPAIR [None]
  - GINGIVAL EROSION [None]
  - GINGIVAL SWELLING [None]
  - INFECTION [None]
  - LYMPHOMA [None]
  - MASTOCYTOSIS [None]
  - METASTASIS [None]
  - MOUTH ULCERATION [None]
  - ORAL DISORDER [None]
  - ORAL PAIN [None]
  - ORAL PRURITUS [None]
  - ORAL SURGERY [None]
  - OSTEOMYELITIS [None]
  - OSTEONECROSIS [None]
  - OSTEOPENIA [None]
  - PALATAL DISORDER [None]
  - PALATAL OEDEMA [None]
  - PERIODONTAL DISEASE [None]
  - POLYPECTOMY [None]
  - PRURITUS [None]
  - SINUS ANTROSTOMY [None]
  - SINUSITIS [None]
  - SWELLING [None]
  - SWOLLEN TONGUE [None]
  - TOOTH DISORDER [None]
  - TOOTH EXTRACTION [None]
  - WEIGHT DECREASED [None]
